FAERS Safety Report 13284532 (Version 1)
Quarter: 2017Q1

REPORT INFORMATION
  Report Type: Spontaneous
  Country: CA (occurrence: CA)
  Receive Date: 20170301
  Receipt Date: 20170301
  Transmission Date: 20170428
  Serious: Yes (Hospitalization)
  Sender: FDA-Public Use
  Company Number: CA-TEVA-742870ACC

PATIENT
  Age: 52 Year
  Sex: Female

DRUGS (4)
  1. MOBICOX [Concomitant]
     Active Substance: MELOXICAM
  2. SERC [Concomitant]
     Active Substance: BETAHISTINE HYDROCHLORIDE
  3. RANITIDINE. [Concomitant]
     Active Substance: RANITIDINE
  4. RATIO-PREDNISOLONE [Suspect]
     Active Substance: PREDNISOLONE
     Indication: CORNEAL TRANSPLANT
     Dosage: 1 GTT DAILY;
     Route: 047

REACTIONS (4)
  - Eyelid irritation [Unknown]
  - Eyelids pruritus [Unknown]
  - Skin irritation [Unknown]
  - Erythema of eyelid [Unknown]
